APPROVED DRUG PRODUCT: OXACILLIN SODIUM
Active Ingredient: OXACILLIN SODIUM
Strength: EQ 10GM BASE/VIAL
Dosage Form/Route: INJECTABLE;INJECTION
Application: A061490 | Product #006
Applicant: SANDOZ INC
Approved: May 9, 1991 | RLD: No | RS: No | Type: DISCN